FAERS Safety Report 8482799-0 (Version None)
Quarter: 2012Q3

REPORT INFORMATION
  Report Type: 
  Country: None (occurrence: None)
  Receive Date: 20120702
  Receipt Date: 20120625
  Transmission Date: 20120928
  Serious: Yes (Hospitalization)
  Sender: FDA-Public Use
  Company Number: PHHY2011PL098981

PATIENT
  Age: 23 Year
  Sex: Female

DRUGS (2)
  1. BACLOFEN [Suspect]
  2. LAMOTRIGINE [Suspect]
     Dosage: ABOUT 100-200 CAPSULES

REACTIONS (28)
  - RHABDOMYOLYSIS [None]
  - SUICIDE ATTEMPT [None]
  - POISONING [None]
  - ASPIRATION [None]
  - BODY TEMPERATURE DECREASED [None]
  - BALANCE DISORDER [None]
  - VENTRICULAR ARRHYTHMIA [None]
  - PNEUMONIA ASPIRATION [None]
  - OVERDOSE [None]
  - HYPERCAPNIA [None]
  - MEMORY IMPAIRMENT [None]
  - CONVULSION [None]
  - VENTRICULAR FIBRILLATION [None]
  - PSYCHOMOTOR SKILLS IMPAIRED [None]
  - ARRHYTHMIA SUPRAVENTRICULAR [None]
  - LOSS OF CONSCIOUSNESS [None]
  - AREFLEXIA [None]
  - BLOOD PRESSURE DECREASED [None]
  - HYPONATRAEMIA [None]
  - ATRIOVENTRICULAR BLOCK COMPLETE [None]
  - ENCEPHALOPATHY [None]
  - VOMITING [None]
  - ATAXIA [None]
  - SPEECH DISORDER [None]
  - GENERAL PHYSICAL HEALTH DETERIORATION [None]
  - VENTRICULAR TACHYCARDIA [None]
  - RESPIRATORY FAILURE [None]
  - HYPOKALAEMIA [None]
